FAERS Safety Report 10423404 (Version 1)
Quarter: 2014Q3

REPORT INFORMATION
  Report Type: Spontaneous
  Country: FR (occurrence: FR)
  Receive Date: 20140902
  Receipt Date: 20140902
  Transmission Date: 20150326
  Serious: Yes (Other)
  Sender: FDA-Public Use
  Company Number: FR-BAYER-2014-125152

PATIENT
  Age: 56 Year
  Sex: Male

DRUGS (1)
  1. NEXAVAR [Suspect]
     Active Substance: SORAFENIB
     Dosage: 400 MG, BID (2 TABLETS IN THE MORNING AND IN THE EVENING)
     Route: 048
     Dates: start: 201407, end: 201408

REACTIONS (3)
  - Skin ulcer [Not Recovered/Not Resolved]
  - Dermatitis [Not Recovered/Not Resolved]
  - Skin disorder [Not Recovered/Not Resolved]

NARRATIVE: CASE EVENT DATE: 2014
